FAERS Safety Report 23423233 (Version 1)
Quarter: 2024Q1

REPORT INFORMATION
  Report Type: Spontaneous
  Country: US (occurrence: US)
  Receive Date: 20240119
  Receipt Date: 20240119
  Transmission Date: 20240409
  Serious: No
  Sender: FDA-Public Use
  Company Number: US-Covis Pharma GmbH-2024COV00024

PATIENT
  Age: 71 Year
  Sex: Male

DRUGS (1)
  1. ALVESCO [Suspect]
     Active Substance: CICLESONIDE
     Dosage: 2 PUFFS 2 TIMES DAILY
     Route: 055

REACTIONS (3)
  - Influenza like illness [Recovered/Resolved]
  - Cough [Unknown]
  - Treatment noncompliance [Unknown]
